FAERS Safety Report 9516842 (Version 1)
Quarter: 2013Q1

REPORT INFORMATION
  Report Type: Spontaneous
  Country: US (occurrence: None)
  Receive Date: 20130305
  Receipt Date: 20130305
  Transmission Date: 20140127
  Serious: Yes (Other)
  Sender: FDA-Public Use
  Company Number: 163-21880-12120587

PATIENT
  Age: 53 Year
  Sex: 0

DRUGS (16)
  1. REVLIMID [Suspect]
     Indication: PLASMA CELL MYELOMA
     Dosage: 28 IN 28 D
     Route: 048
     Dates: start: 201001
  2. VELCADE (BORTEZOMIB) [Concomitant]
  3. CARFILZOMIB 9CARFILZOMIB) [Concomitant]
  4. ZOMETA (ZOLEDRONIC ACID) [Concomitant]
  5. PRBC (RED BLOOD CELLS) [Concomitant]
  6. DEXAMETHASONE (DEXAMETHASONE) [Concomitant]
  7. ALLOPURINOL [Concomitant]
  8. COLACE (DOCUSATE SODIUM) [Concomitant]
  9. EMLA (EMLA) [Concomitant]
  10. GARAMYCIN (GENTAMICIN SULFATE) [Concomitant]
  11. KYPROLIS (SOLUTION) [Concomitant]
  12. MAGNESIUM OXIDE (MAGNESIUM OXIDE) [Concomitant]
  13. MIACALCIN (CALCITONIN, SALMON) [Concomitant]
  14. SODIUIM BICARBONATE (SODIUM BICARBONATE) [Concomitant]
  15. VICODIN (VICODIN) [Concomitant]
  16. NEUPOGEN  (FILGRASTIM) [Concomitant]

REACTIONS (1)
  - Pathological fracture [None]
